FAERS Safety Report 7199130-3 (Version None)
Quarter: 2010Q4

REPORT INFORMATION
  Report Type: 
  Country: None (occurrence: None)
  Receive Date: 20101228
  Receipt Date: 20100923
  Transmission Date: 20110411
  Serious: Yes (Hospitalization, Other)
  Sender: FDA-Public Use
  Company Number: US-BAYER-201020431NA

PATIENT
  Sex: Female
  Weight: 70.455 kg

DRUGS (7)
  1. YASMIN [Suspect]
     Route: 048
     Dates: start: 20010918, end: 20061218
  2. MACROBID [Concomitant]
     Dates: start: 20040601
  3. PLAVIX [Concomitant]
     Dates: start: 20060101
  4. ZOLOFT [Concomitant]
     Dates: start: 20061127, end: 20061218
  5. XANAX [Concomitant]
     Dates: start: 20020816
  6. VALTREX [Concomitant]
     Dates: start: 20040101
  7. ALDARA [Concomitant]
     Dates: start: 20000101

REACTIONS (5)
  - CEREBRAL THROMBOSIS [None]
  - CEREBROVASCULAR ACCIDENT [None]
  - DYSARTHRIA [None]
  - HEMIPLEGIA [None]
  - VIITH NERVE PARALYSIS [None]
